FAERS Safety Report 7872703-8 (Version None)
Quarter: 2011Q4

REPORT INFORMATION
  Report Type: 
  Country: None (occurrence: None)
  Receive Date: 20111030
  Receipt Date: 20110420
  Transmission Date: 20120403
  Serious: Yes (Other)
  Sender: FDA-Public Use
  Company Number: US-AMGEN-USASP2011020724

PATIENT
  Age: 46 Year
  Sex: Female

DRUGS (2)
  1. ARAVA [Concomitant]
  2. ENBREL [Suspect]
     Indication: ANKYLOSING SPONDYLITIS
     Dosage: 50 MG, QWK
     Dates: start: 20110329, end: 20110410

REACTIONS (9)
  - HYPERSENSITIVITY [None]
  - NAUSEA [None]
  - RASH ERYTHEMATOUS [None]
  - INJECTION SITE WARMTH [None]
  - ADVERSE DRUG REACTION [None]
  - DIARRHOEA [None]
  - INJECTION SITE ERYTHEMA [None]
  - INJECTION SITE PRURITUS [None]
  - INJECTION SITE PAIN [None]
